FAERS Safety Report 21986214 (Version 2)
Quarter: 2023Q1

REPORT INFORMATION
  Report Type: Spontaneous
  Country: PT (occurrence: None)
  Receive Date: 20230213
  Receipt Date: 20230317
  Transmission Date: 20230418
  Serious: Yes (Hospitalization, Other)
  Sender: FDA-Public Use
  Company Number: PT-Merck Healthcare KGaA-9382538

PATIENT
  Age: 77 Year
  Sex: Male

DRUGS (1)
  1. AVELUMAB [Suspect]
     Active Substance: AVELUMAB
     Indication: Bladder cancer
     Route: 042
     Dates: start: 20221222

REACTIONS (5)
  - Diabetic ketoacidosis [Recovering/Resolving]
  - Disorientation [Recovering/Resolving]
  - Encephalopathy [Recovering/Resolving]
  - Renal disorder [Recovering/Resolving]
  - Electrolyte imbalance [Recovering/Resolving]

NARRATIVE: CASE EVENT DATE: 20230101
